FAERS Safety Report 6703299-1 (Version None)
Quarter: 2010Q2

REPORT INFORMATION
  Report Type: 
  Country: None (occurrence: None)
  Receive Date: 20100430
  Receipt Date: 20100419
  Transmission Date: 20101027
  Serious: Yes (Other)
  Sender: FDA-Public Use
  Company Number: US-RANBAXY-2010US-30873

PATIENT

DRUGS (2)
  1. VERAPAMIL [Suspect]
     Indication: ARRHYTHMIA
     Dosage: UNK, UNK
     Route: 065
  2. LIDOCAINE [Suspect]
     Indication: ARRHYTHMIA
     Route: 065

REACTIONS (5)
  - BUNDLE BRANCH BLOCK RIGHT [None]
  - DRUG INEFFECTIVE FOR UNAPPROVED INDICATION [None]
  - OFF LABEL USE [None]
  - VENTRICULAR EXTRASYSTOLES [None]
  - VENTRICULAR TACHYCARDIA [None]
